FAERS Safety Report 8274024-0 (Version None)
Quarter: 2012Q2

REPORT INFORMATION
  Report Type: 
  Country: None (occurrence: None)
  Receive Date: 20120411
  Receipt Date: 20120402
  Transmission Date: 20120825
  Serious: Yes (Other)
  Sender: FDA-Public Use
  Company Number: PHEH2012US004031

PATIENT
  Sex: Female
  Weight: 65.76 kg

DRUGS (15)
  1. ATIVAN [Concomitant]
     Dosage: 0.5 MG, UNK
  2. TRAMADOL HCL [Concomitant]
     Dosage: 50 MG, UNK
  3. BIOPLEX MOUTHWASH [Concomitant]
  4. LORTAB [Concomitant]
  5. LUNESTA [Concomitant]
  6. MORPHINE SULFATE [Concomitant]
  7. ZOMETA [Concomitant]
  8. VOTRIENT [Concomitant]
  9. AMBIEN CR [Concomitant]
     Dosage: 6.25 MG, UNK
  10. ZOFRAN [Concomitant]
  11. AFINITOR [Suspect]
     Indication: RENAL CANCER METASTATIC
     Dosage: 10 MG, QD
     Route: 048
     Dates: start: 20120126, end: 20120222
  12. ULTRAM [Concomitant]
  13. BIOPLEX MOUTHWASH [Concomitant]
  14. NORCO [Concomitant]
  15. IBUPROFEN (ADVIL) [Concomitant]

REACTIONS (20)
  - GLOMERULAR FILTRATION RATE DECREASED [None]
  - BLOOD ALKALINE PHOSPHATASE DECREASED [None]
  - ALANINE AMINOTRANSFERASE INCREASED [None]
  - WHITE BLOOD CELL COUNT DECREASED [None]
  - NEUTROPENIA [None]
  - NAUSEA [None]
  - NEOPLASM PROGRESSION [None]
  - NEOPLASM MALIGNANT [None]
  - PAIN [None]
  - PROTEIN TOTAL INCREASED [None]
  - GLOBULINS INCREASED [None]
  - ASPARTATE AMINOTRANSFERASE INCREASED [None]
  - ARTHRALGIA [None]
  - FATIGUE [None]
  - DRUG INEFFECTIVE [None]
  - HYPERLIPIDAEMIA [None]
  - RED BLOOD CELL COUNT DECREASED [None]
  - MOUTH ULCERATION [None]
  - GAIT DISTURBANCE [None]
  - DIARRHOEA [None]
